FAERS Safety Report 7636373-6 (Version None)
Quarter: 2011Q3

REPORT INFORMATION
  Report Type: 
  Country: None (occurrence: None)
  Receive Date: 20110726
  Receipt Date: 20110718
  Transmission Date: 20111222
  Serious: Yes (Hospitalization)
  Sender: FDA-Public Use
  Company Number: GB-GLAXOSMITHKLINE-B0733741A

PATIENT
  Age: 17 Year
  Sex: Male

DRUGS (1)
  1. MALARONE [Suspect]
     Indication: MALARIA PROPHYLAXIS
     Route: 048
     Dates: start: 20110630

REACTIONS (7)
  - NAUSEA [None]
  - TREATMENT NONCOMPLIANCE [None]
  - SKIN EXFOLIATION [None]
  - CIRCULATORY COLLAPSE [None]
  - MOTION SICKNESS [None]
  - MALAISE [None]
  - ABNORMAL DREAMS [None]
